FAERS Safety Report 10461998 (Version 2)
Quarter: 2014Q3

REPORT INFORMATION
  Report Type: Spontaneous
  Country: FR (occurrence: FR)
  Receive Date: 20140918
  Receipt Date: 20140918
  Transmission Date: 20150326
  Serious: Yes (Disabling)
  Sender: FDA-Public Use
  Company Number: FR-MERZ NORTH AMERICA, INC.-14MRZ-00195

PATIENT
  Age: 51 Year
  Sex: Female

DRUGS (1)
  1. AETHOXYSKLEROL [Suspect]
     Active Substance: POLIDOCANOL
     Indication: VARICOSE VEIN
     Dosage: 1 INJECTION
     Route: 042
     Dates: start: 20140414, end: 20140414

REACTIONS (1)
  - Blindness transient [Recovered/Resolved]

NARRATIVE: CASE EVENT DATE: 20140414
